APPROVED DRUG PRODUCT: ESMOLOL HYDROCHLORIDE
Active Ingredient: ESMOLOL HYDROCHLORIDE
Strength: 10MG/ML
Dosage Form/Route: INJECTABLE;INJECTION
Application: A201126 | Product #001
Applicant: AMERICAN REGENT INC
Approved: Feb 20, 2015 | RLD: No | RS: No | Type: DISCN